FAERS Safety Report 8758445 (Version 1)
Quarter: 2012Q4

REPORT INFORMATION
  Report Type: Spontaneous
  Country: US (occurrence: None)
  Receive Date: 20120828
  Receipt Date: 20120828
  Transmission Date: 20130627
  Serious: Yes (Hospitalization)
  Sender: FDA-Public Use
  Company Number: None

PATIENT
  Age: 82 Year
  Sex: Male
  Weight: 79.8 kg

DRUGS (1)
  1. TRAZODONE [Suspect]
     Indication: SLEEP DISORDER THERAPY
     Dates: start: 20120826, end: 20120827

REACTIONS (1)
  - Hallucination, visual [None]
